FAERS Safety Report 5302914-7 (Version None)
Quarter: 2007Q2

REPORT INFORMATION
  Report Type: 
  Country: None (occurrence: None)
  Receive Date: 20070419
  Receipt Date: 20070419
  Transmission Date: 20071010
  Serious: No
  Sender: FDA-Public Use
  Company Number: None

PATIENT
  Sex: Female
  Weight: 84.9 kg

DRUGS (10)
  1. CISPLATIN [Suspect]
     Dosage: 93 MG
  2. TAXOL [Suspect]
     Dosage: 251 MG
  3. DECADRON [Concomitant]
  4. HYDROCHLOROTHIAZIDE [Concomitant]
  5. LISINOPRIL [Concomitant]
  6. LUMIGAN [Concomitant]
  7. NORVASC [Concomitant]
  8. PERCOCET [Concomitant]
  9. POTASSIUM ACETATE [Concomitant]
  10. ZOFRAN [Concomitant]

REACTIONS (1)
  - NEUTROPHIL COUNT DECREASED [None]
